FAERS Safety Report 5927209-X (Version None)
Quarter: 2008Q4

REPORT INFORMATION
  Report Type: 
  Country: None (occurrence: None)
  Receive Date: 20081022
  Receipt Date: 20081010
  Transmission Date: 20090506
  Serious: Yes (Hospitalization)
  Sender: FDA-Public Use
  Company Number: FR-PFIZER INC-2008086003

PATIENT
  Age: 55 Year
  Sex: Female

DRUGS (2)
  1. LYRICA [Suspect]
  2. ALCOHOL [Suspect]

REACTIONS (3)
  - DYSSTASIA [None]
  - FEELING DRUNK [None]
  - SUICIDE ATTEMPT [None]
